FAERS Safety Report 4338390-0 (Version None)
Quarter: 2004Q2

REPORT INFORMATION
  Report Type: 
  Country: None (occurrence: None)
  Receive Date: 20040407
  Receipt Date: 20040329
  Transmission Date: 20050107
  Serious: Yes (Congenital Anomaly)
  Sender: FDA-Public Use
  Company Number: 2004206092DE

PATIENT
  Sex: Male

DRUGS (10)
  1. VANTIN [Suspect]
     Indication: BORRELIA BURGDORFERI SEROLOGY POSITIVE
     Dosage: 200 MG, DAILY, TRANSPLACENTAL
     Route: 064
     Dates: start: 20010711, end: 20010720
  2. FOLIC ACID [Concomitant]
  3. TROMCARDIN (MAGNESIUM ASPARTATE, ASPARTATE POTASSIUM) [Concomitant]
  4. MAGNETRANS  FORTE [Concomitant]
  5. VERTIGOHEEL (HOMEOPATICS NOS) [Concomitant]
  6. CLOTRIMAZOLE [Concomitant]
  7. MULTIBIONTA (CALCIUM PANTOTHENATE) [Concomitant]
  8. METHYLDOPA [Concomitant]
  9. PARTUSISTEN (FENOTEROL HYDROBROMIDE) [Concomitant]
  10. POTASSIUM [Concomitant]

REACTIONS (7)
  - CAESAREAN SECTION [None]
  - DRUG EXPOSURE DURING PREGNANCY [None]
  - HYPOGLYCAEMIA NEONATAL [None]
  - PLACENTAL INSUFFICIENCY [None]
  - SPEECH DISORDER DEVELOPMENTAL [None]
  - TOOTH HYPOPLASIA [None]
  - UMBILICAL CORD AROUND NECK [None]
